FAERS Safety Report 16785193 (Version 2)
Quarter: 2019Q3

REPORT INFORMATION
  Report Type: Spontaneous
  Country: ES (occurrence: ES)
  Receive Date: 20190909
  Receipt Date: 20190930
  Transmission Date: 20191005
  Serious: Yes (Other)
  Sender: FDA-Public Use
  Company Number: ES-GILEAD-2019-0423237

PATIENT
  Age: 49 Year
  Sex: Female

DRUGS (1)
  1. EPCLUSA [Suspect]
     Active Substance: SOFOSBUVIR\VELPATASVIR
     Indication: CHRONIC HEPATITIS C
     Dosage: 1 DOSAGE FORM, QD
     Route: 065
     Dates: start: 20190601, end: 20190824

REACTIONS (3)
  - Idiopathic orbital inflammation [Unknown]
  - Diplopia [Unknown]
  - Haemangioma [Unknown]

NARRATIVE: CASE EVENT DATE: 20190808
